FAERS Safety Report 8049681 (Version 3)
Quarter: 2012Q4

REPORT INFORMATION
  Report Type: 
  Country: DK (occurrence: DK)
  Receive Date: 20110722
  Receipt Date: 20121011
  Transmission Date: 20130627
  Serious: Yes (Hospitalization)
  Sender: FDA-Public Use
  Company Number: DK-GLAXOSMITHKLINE-B0734469A

PATIENT
  Age: 43 Year
  Sex: Female

DRUGS (3)
  1. ALLI [Suspect]
     Indication: OVERWEIGHT
     Route: 048
     Dates: start: 201101, end: 20110516
  2. CIPRALEX [Concomitant]
     Indication: DEPRESSION
     Route: 065
     Dates: start: 2002, end: 20110601
  3. SEROQUEL [Concomitant]
     Indication: DEPRESSION
     Route: 065
     Dates: start: 2008, end: 201105

REACTIONS (1)
  - Hepatitis [Recovered/Resolved]
